FAERS Safety Report 12004605 (Version 2)
Quarter: 2016Q1

REPORT INFORMATION
  Report Type: Spontaneous
  Country: US (occurrence: US)
  Receive Date: 20160204
  Receipt Date: 20160216
  Transmission Date: 20160526
  Serious: Yes (Other)
  Sender: FDA-Public Use
  Company Number: US-GILEAD-2016-0195639

PATIENT
  Age: 63 Year
  Sex: Female
  Weight: 89.34 kg

DRUGS (1)
  1. HARVONI [Suspect]
     Active Substance: LEDIPASVIR\SOFOSBUVIR
     Indication: CHRONIC HEPATITIS C
     Dosage: UNK
     Route: 065
     Dates: start: 20150818, end: 20160126

REACTIONS (2)
  - Creatinine renal clearance decreased [Unknown]
  - Ovarian mass [Unknown]

NARRATIVE: CASE EVENT DATE: 201512
